FAERS Safety Report 17683274 (Version 3)
Quarter: 2020Q2

REPORT INFORMATION
  Report Type: Report from Study
  Country: None (occurrence: US)
  Receive Date: 20200420
  Receipt Date: 20200525
  Transmission Date: 20200714
  Serious: Yes (Other)
  Sender: FDA-Public Use
  Company Number: US-INSMED, INC.-US-INS-20-00614

PATIENT
  Age: 56 Year
  Sex: Female

DRUGS (5)
  1. ARIKAYCE [Suspect]
     Active Substance: AMIKACIN
     Indication: MYCOBACTERIAL INFECTION
     Route: 055
     Dates: start: 202003, end: 202003
  2. ARIKAYCE [Suspect]
     Active Substance: AMIKACIN
     Route: 055
     Dates: start: 20200326, end: 2020
  3. ARIKAYCE [Suspect]
     Active Substance: AMIKACIN
     Route: 055
     Dates: start: 20200317, end: 20200325
  4. LAMIRA NEBULIZER SYSTEM [Suspect]
     Active Substance: DEVICE
  5. ARIKAYCE [Suspect]
     Active Substance: AMIKACIN
     Route: 055
     Dates: start: 202004, end: 202005

REACTIONS (16)
  - Total lung capacity decreased [Not Recovered/Not Resolved]
  - Dyspnoea [Unknown]
  - Chronic obstructive pulmonary disease [Recovered/Resolved]
  - Haemoptysis [Unknown]
  - Tinnitus [Unknown]
  - Pulmonary mass [Not Recovered/Not Resolved]
  - Breath sounds abnormal [Not Recovered/Not Resolved]
  - Toothache [Unknown]
  - Asthenia [Unknown]
  - Haemoptysis [Recovered/Resolved]
  - Mouth haemorrhage [Unknown]
  - Ear swelling [Unknown]
  - Productive cough [Unknown]
  - Off label use [Unknown]
  - Chronic obstructive pulmonary disease [Unknown]
  - Vomiting [Unknown]

NARRATIVE: CASE EVENT DATE: 2020
